FAERS Safety Report 25774762 (Version 1)
Quarter: 2025Q3

REPORT INFORMATION
  Report Type: Spontaneous
  Country: US (occurrence: US)
  Receive Date: 20250908
  Receipt Date: 20250908
  Transmission Date: 20251021
  Serious: Yes (Other)
  Sender: KINIKSA PHARMACEUTICALS
  Company Number: US-KINIKSA PHARMACEUTICALS LTD.-2025KPU002387

PATIENT

DRUGS (4)
  1. ARCALYST [Suspect]
     Active Substance: RILONACEPT
     Indication: Pericarditis
     Dosage: 160 MILLIGRAM, QW
     Dates: start: 202210
  2. ARCALYST [Suspect]
     Active Substance: RILONACEPT
     Dosage: UNK, QW
     Dates: end: 202502
  3. ARCALYST [Suspect]
     Active Substance: RILONACEPT
     Dosage: UNK, QW
     Dates: start: 2025
  4. PREDNISONE [Concomitant]
     Active Substance: PREDNISONE
     Indication: Vasculitis

REACTIONS (5)
  - Lymphoma [Unknown]
  - Immunosuppression [Unknown]
  - Lymphocyte count abnormal [Unknown]
  - Platelet count abnormal [Unknown]
  - Neutrophil count abnormal [Unknown]

NARRATIVE: CASE EVENT DATE: 20250101
